FAERS Safety Report 16709997 (Version 3)
Quarter: 2019Q3

REPORT INFORMATION
  Report Type: Spontaneous
  Country: US (occurrence: US)
  Receive Date: 20190816
  Receipt Date: 20190913
  Transmission Date: 20191004
  Serious: Yes (Hospitalization)
  Sender: FDA-Public Use
  Company Number: US-PFIZER INC-2019350069

PATIENT
  Age: 63 Year
  Sex: Female
  Weight: 88.44 kg

DRUGS (1)
  1. ELETRIPTAN HBR [Suspect]
     Active Substance: ELETRIPTAN HYDROBROMIDE
     Indication: MIGRAINE
     Dosage: 40 MG, UNK (40 MG 1-2 TABLET PER DAY)
     Dates: start: 2018

REACTIONS (5)
  - Chills [Unknown]
  - Vomiting [Unknown]
  - Pain [Unknown]
  - Drug ineffective [Not Recovered/Not Resolved]
  - Nausea [Unknown]

NARRATIVE: CASE EVENT DATE: 2018
